FAERS Safety Report 25577035 (Version 1)
Quarter: 2025Q3

REPORT INFORMATION
  Report Type: Spontaneous
  Country: EU (occurrence: EU)
  Receive Date: 20250718
  Receipt Date: 20250718
  Transmission Date: 20251021
  Serious: Yes (Other)
  Sender: RANBAXY
  Company Number: EU-SUN PHARMACEUTICAL INDUSTRIES LTD-2025RR-517048

PATIENT
  Age: 63 Year
  Sex: Female

DRUGS (18)
  1. PREGABALIN [Suspect]
     Active Substance: PREGABALIN
     Indication: Anxiety
     Dosage: 75 MILLIGRAM, DAILY
     Route: 065
     Dates: start: 202103
  2. PREGABALIN [Suspect]
     Active Substance: PREGABALIN
     Indication: Asthenia
     Dosage: 75 MILLIGRAM, BID
     Route: 065
     Dates: start: 2021
  3. PREGABALIN [Suspect]
     Active Substance: PREGABALIN
     Indication: Anhedonia
     Dosage: 75 MILLIGRAM, BID
     Route: 065
     Dates: start: 2021
  4. PREGABALIN [Suspect]
     Active Substance: PREGABALIN
     Indication: Depressed mood
     Dosage: 75 MILLIGRAM, BID
     Route: 065
     Dates: start: 202110
  5. LORAZEPAM [Suspect]
     Active Substance: LORAZEPAM
     Indication: Depressed mood
     Dosage: 2 MILLIGRAM, DAILY, AT NIGHT
     Route: 065
     Dates: start: 202103
  6. LORAZEPAM [Suspect]
     Active Substance: LORAZEPAM
     Indication: Anhedonia
  7. LORAZEPAM [Suspect]
     Active Substance: LORAZEPAM
     Indication: Asthenia
  8. LORAZEPAM [Suspect]
     Active Substance: LORAZEPAM
     Indication: Anxiety
  9. PAROXETINE [Suspect]
     Active Substance: PAROXETINE
     Indication: Depressed mood
     Dosage: 20 MILLIGRAM, DAILY
     Route: 065
  10. ALPRAZOLAM [Suspect]
     Active Substance: ALPRAZOLAM
     Indication: Depressed mood
     Route: 065
  11. DULOXETINE [Suspect]
     Active Substance: DULOXETINE
     Indication: Depressed mood
     Dosage: 60 MILLIGRAM, DAILY
     Route: 065
     Dates: start: 202103
  12. DULOXETINE [Suspect]
     Active Substance: DULOXETINE
     Indication: Anhedonia
     Dosage: 90 MILLIGRAM, DAILY
     Route: 065
     Dates: start: 2021
  13. DULOXETINE [Suspect]
     Active Substance: DULOXETINE
     Indication: Asthenia
     Dosage: 120 MILLIGRAM, DAILY
     Route: 065
     Dates: start: 2021
  14. DULOXETINE [Suspect]
     Active Substance: DULOXETINE
     Indication: Anxiety
     Dosage: 60 MILLIGRAM, DAILY
     Route: 065
     Dates: start: 202103
  15. DULOXETINE [Suspect]
     Active Substance: DULOXETINE
     Indication: Insomnia
     Dosage: 90 MILLIGRAM, DAILY
     Route: 065
     Dates: start: 202107
  16. DULOXETINE [Suspect]
     Active Substance: DULOXETINE
     Indication: Eating disorder
  17. ARIPIPRAZOLE [Suspect]
     Active Substance: ARIPIPRAZOLE
     Indication: Eating disorder
     Dosage: 5 MILLIGRAM, DAILY, AT NIGHT
     Route: 065
     Dates: start: 202107
  18. ARIPIPRAZOLE [Suspect]
     Active Substance: ARIPIPRAZOLE
     Indication: Insomnia

REACTIONS (6)
  - Therapeutic product effect incomplete [Recovering/Resolving]
  - Drug ineffective [Recovering/Resolving]
  - Weight increased [Unknown]
  - Therapy cessation [Recovering/Resolving]
  - Sedation [Recovering/Resolving]
  - Treatment noncompliance [Unknown]

NARRATIVE: CASE EVENT DATE: 20220101
